FAERS Safety Report 14146430 (Version 1)
Quarter: 2017Q4

REPORT INFORMATION
  Report Type: Spontaneous
  Country: US (occurrence: None)
  Receive Date: 20171031
  Receipt Date: 20171031
  Transmission Date: 20180321
  Serious: Yes (Death, Hospitalization)
  Sender: FDA-Public Use
  Company Number: None

PATIENT
  Age: 80 Year
  Sex: Male

DRUGS (19)
  1. CALCIUM CARB [Concomitant]
  2. GLUCOS/CHOND [Concomitant]
  3. REMICADE [Concomitant]
     Active Substance: INFLIXIMAB
  4. TYLENOL [Concomitant]
     Active Substance: ACETAMINOPHEN
  5. CAPECITABINE. [Suspect]
     Active Substance: CAPECITABINE
     Indication: COLON CANCER
     Dosage: DOSE AMOUNT - FOUR 500MG TABLETS - PO - QD
     Route: 048
     Dates: start: 20171004
  6. CALCITROL [Concomitant]
     Active Substance: CALCITRIOL
  7. VITAMIN B12 [Concomitant]
     Active Substance: CYANOCOBALAMIN
  8. FERROUS SULF [Concomitant]
     Active Substance: FERROUS SULFATE
  9. SYNVISC [Concomitant]
     Active Substance: HYALURONATE SODIUM
  10. MULTI-VITE [Concomitant]
  11. FIBERCON [Concomitant]
     Active Substance: CALCIUM POLYCARBOPHIL
  12. MIRALAX [Concomitant]
     Active Substance: POLYETHYLENE GLYCOL 3350
  13. XGEVA [Concomitant]
     Active Substance: DENOSUMAB
  14. ATORVASTATIN [Concomitant]
     Active Substance: ATORVASTATIN
  15. COREG [Concomitant]
     Active Substance: CARVEDILOL
  16. MAGNESIUM SU [Concomitant]
  17. MULTIVIT/FL CHW [Concomitant]
  18. PENTASA [Concomitant]
     Active Substance: MESALAMINE
  19. VITAMIN D3 [Concomitant]
     Active Substance: CHOLECALCIFEROL

REACTIONS (1)
  - Hospice care [None]

NARRATIVE: CASE EVENT DATE: 20171029
